FAERS Safety Report 8877627 (Version 1)
Quarter: 2012Q4

REPORT INFORMATION
  Report Type: 
  Country: US (occurrence: US)
  Receive Date: 20121024
  Receipt Date: 20121024
  Transmission Date: 20130627
  Serious: Yes (Other)
  Sender: FDA-Public Use
  Company Number: PHEH2012US020703

PATIENT
  Sex: Female

DRUGS (6)
  1. VOLTAREN [Suspect]
  2. ESTRING [Suspect]
  3. ESTRADIOL [Suspect]
  4. CALTRATE [Suspect]
  5. SYNTHROID [Suspect]
  6. IMURAN [Suspect]

REACTIONS (3)
  - Systemic lupus erythematosus [Unknown]
  - Vaginal discharge [Unknown]
  - Drug ineffective [Unknown]
